FAERS Safety Report 4647291-X (Version None)
Quarter: 2005Q2

REPORT INFORMATION
  Report Type: 
  Country: None (occurrence: None)
  Receive Date: 20050425
  Receipt Date: 20050425
  Transmission Date: 20051028
  Serious: No
  Sender: FDA-Public Use
  Company Number: None

PATIENT
  Age: 78 Year
  Sex: Male
  Weight: 63.5036 kg

DRUGS (3)
  1. NAMENDA [Suspect]
     Indication: AMNESIA
     Dosage: 5-20MG DAY ORAL
     Route: 048
     Dates: start: 20040901, end: 20040928
  2. COUMADIN [Concomitant]
  3. TRAZODONE HCL [Concomitant]

REACTIONS (2)
  - HERPES ZOSTER [None]
  - SHOULDER PAIN [None]
